FAERS Safety Report 12870598 (Version 1)
Quarter: 2016Q4

REPORT INFORMATION
  Report Type: Spontaneous
  Country: SE (occurrence: SE)
  Receive Date: 20161021
  Receipt Date: 20161021
  Transmission Date: 20170207
  Serious: Yes (Other)
  Sender: FDA-Public Use
  Company Number: SE-TEVA-701003ROM

PATIENT
  Age: 30 Year
  Sex: Male

DRUGS (4)
  1. FLUNITRAZEPAM [Suspect]
     Active Substance: FLUNITRAZEPAM
  2. FENTANYL. [Suspect]
     Active Substance: FENTANYL
  3. XANOR [Suspect]
     Active Substance: ALPRAZOLAM
  4. FLUNITRAZEPAM [Suspect]
     Active Substance: FLUNITRAZEPAM

REACTIONS (3)
  - Intentional overdose [Recovered/Resolved]
  - Lethargy [Recovered/Resolved]
  - Toxicity to various agents [Recovered/Resolved]
